FAERS Safety Report 12908119 (Version 2)
Quarter: 2017Q1

REPORT INFORMATION
  Report Type: Report from Study
  Country: None (occurrence: US)
  Receive Date: 20161103
  Receipt Date: 20170321
  Transmission Date: 20170428
  Serious: Yes (Hospitalization, Other)
  Sender: FDA-Public Use
  Company Number: US-ABBVIE-16K-163-1766594-00

PATIENT
  Sex: Female

DRUGS (1)
  1. HUMIRA [Suspect]
     Active Substance: ADALIMUMAB
     Indication: HIDRADENITIS
     Route: 058
     Dates: start: 20140202

REACTIONS (5)
  - Neck pain [Unknown]
  - Mania [Unknown]
  - Hidradenitis [Unknown]
  - Back pain [Unknown]
  - Intervertebral disc protrusion [Recovering/Resolving]
